FAERS Safety Report 6608596-6 (Version None)
Quarter: 2010Q1

REPORT INFORMATION
  Report Type: 
  Country: None (occurrence: None)
  Receive Date: 20100301
  Receipt Date: 20100217
  Transmission Date: 20100710
  Serious: Yes (Other)
  Sender: FDA-Public Use
  Company Number: GXKR2010BR01939

PATIENT
  Age: 22 Year
  Sex: Male

DRUGS (3)
  1. ITRACONAZOLE [Suspect]
     Indication: TINEA VERSICOLOUR
     Dosage: 100 MG, BID
     Route: 048
  2. KETOCONAZOLE [Concomitant]
     Indication: TINEA VERSICOLOUR
     Route: 065
  3. ISOCONAZOLE [Concomitant]
     Indication: TINEA VERSICOLOUR
     Route: 061

REACTIONS (4)
  - ACUTE GENERALISED EXANTHEMATOUS PUSTULOSIS [None]
  - BURNING SENSATION [None]
  - PYREXIA [None]
  - RASH PUSTULAR [None]
